FAERS Safety Report 8381523-X (Version None)
Quarter: 2012Q2

REPORT INFORMATION
  Report Type: 
  Country: None (occurrence: None)
  Receive Date: 20120523
  Receipt Date: 20120515
  Transmission Date: 20120825
  Serious: Yes (Other)
  Sender: FDA-Public Use
  Company Number: GB-ROCHE-1056294

PATIENT
  Sex: Male
  Weight: 53.4 kg

DRUGS (8)
  1. OXYGEN [Concomitant]
  2. VISMODEGIB [Suspect]
     Indication: BASAL CELL CARCINOMA
     Dosage: LAST DOSE PRIOR TO SAE: ON 31 MARCH 2012
     Route: 048
     Dates: start: 20120330, end: 20120331
  3. CO-DANTHRAMER [Concomitant]
     Dates: start: 20120301
  4. MORPHINE [Concomitant]
     Dates: start: 20120301
  5. IBUPROFEN [Concomitant]
     Dates: start: 20120301
  6. ACETAMINOPHEN [Concomitant]
     Dates: start: 20120301
  7. MIRTAZAPINE [Concomitant]
     Dates: start: 20120301
  8. POLYETHYLENE GLYCOL [Concomitant]

REACTIONS (1)
  - ANGIOEDEMA [None]
